FAERS Safety Report 22052288 (Version 3)
Quarter: 2023Q1

REPORT INFORMATION
  Report Type: Spontaneous
  Country: US (occurrence: US)
  Receive Date: 20230302
  Receipt Date: 20230313
  Transmission Date: 20230418
  Serious: Yes (Death, Hospitalization, Other)
  Sender: FDA-Public Use
  Company Number: US-BRISTOL-MYERS SQUIBB COMPANY-2023-029203

PATIENT
  Age: 84 Year
  Sex: Female
  Weight: 88.45 kg

DRUGS (4)
  1. OPDUALAG [Suspect]
     Active Substance: NIVOLUMAB\RELATLIMAB-RMBW
     Indication: Metastatic malignant melanoma
     Dosage: 480MG/160MG
     Route: 042
     Dates: start: 20230201
  2. CALCIUM [Concomitant]
     Active Substance: CALCIUM
     Indication: Product used for unknown indication
  3. FLOVENT [Concomitant]
     Active Substance: FLUTICASONE PROPIONATE
     Indication: Product used for unknown indication
     Dosage: INHALER
  4. COMBIVENT [Concomitant]
     Active Substance: ALBUTEROL SULFATE\IPRATROPIUM BROMIDE
     Indication: Product used for unknown indication
     Dosage: INHALER

REACTIONS (5)
  - Immune-mediated myasthenia gravis [Fatal]
  - Immune-mediated myocarditis [Fatal]
  - Immune-mediated dermatitis [Fatal]
  - Immune-mediated hepatitis [Fatal]
  - Diplopia [Unknown]

NARRATIVE: CASE EVENT DATE: 20230201
